FAERS Safety Report 7974019-8 (Version None)
Quarter: 2011Q4

REPORT INFORMATION
  Report Type: 
  Country: None (occurrence: None)
  Receive Date: 20111213
  Receipt Date: 20111205
  Transmission Date: 20120403
  Serious: Yes (Death)
  Sender: FDA-Public Use
  Company Number: DK-GLAXOSMITHKLINE-B0678688A

PATIENT
  Sex: Male
  Weight: 113 kg

DRUGS (7)
  1. SIMVASTATIN [Concomitant]
     Route: 048
     Dates: start: 20030101, end: 20100809
  2. IRBESARTAN [Concomitant]
     Indication: HYPERTENSION
     Route: 048
     Dates: start: 20050101, end: 20100809
  3. POTASSIUM CHLORIDE [Concomitant]
     Route: 048
     Dates: start: 20100101, end: 20100809
  4. LEVOTHYROXINE SODIUM [Concomitant]
     Route: 048
     Dates: start: 20000101, end: 20100809
  5. METFORMIN HCL [Concomitant]
     Indication: TYPE 2 DIABETES MELLITUS
     Route: 048
     Dates: start: 20020101, end: 20100809
  6. AVANDIA [Suspect]
     Indication: TYPE 2 DIABETES MELLITUS
     Route: 048
     Dates: start: 20040301, end: 20100809
  7. FUROSEMIDE [Concomitant]
     Indication: DIURETIC THERAPY
     Route: 048
     Dates: start: 20040101, end: 20100809

REACTIONS (1)
  - SUDDEN DEATH [None]
